FAERS Safety Report 13935009 (Version 2)
Quarter: 2017Q4

REPORT INFORMATION
  Report Type: Report from Study
  Country: CA (occurrence: CA)
  Receive Date: 20170905
  Receipt Date: 20171130
  Transmission Date: 20180320
  Serious: Yes (Other)
  Sender: FDA-Public Use
  Company Number: CA-AMGEN-CANSL2017131907

PATIENT
  Age: 61 Year
  Sex: Female

DRUGS (1)
  1. REPATHA [Suspect]
     Active Substance: EVOLOCUMAB
     Indication: TYPE IIA HYPERLIPIDAEMIA
     Dosage: 140 MG/ML, UNK
     Route: 065
     Dates: start: 20160930

REACTIONS (7)
  - Dyspnoea [Unknown]
  - Nausea [Unknown]
  - Wheezing [Unknown]
  - Fatigue [Unknown]
  - Muscle spasms [Unknown]
  - Myalgia [Unknown]
  - Dizziness [Unknown]
